FAERS Safety Report 23601757 (Version 1)
Quarter: 2024Q1

REPORT INFORMATION
  Report Type: Spontaneous
  Country: FR (occurrence: FR)
  Receive Date: 20240306
  Receipt Date: 20240306
  Transmission Date: 20240409
  Serious: Yes (Hospitalization)
  Sender: FDA-Public Use
  Company Number: None

PATIENT
  Age: 76 Year
  Sex: Male
  Weight: 79 kg

DRUGS (13)
  1. ARSENIC TRIOXIDE [Suspect]
     Active Substance: ARSENIC TRIOXIDE
     Indication: Acute leukaemia
     Dosage: CONSOLIDATION PHASE (5 DAYS/7)
     Route: 042
     Dates: start: 20230811, end: 20230815
  2. ARSENIC TRIOXIDE [Suspect]
     Active Substance: ARSENIC TRIOXIDE
     Indication: Acute leukaemia
     Dosage: CONSOLIDATION PHASE (5 DAYS/7)
     Route: 042
     Dates: start: 20231002, end: 20231016
  3. ARSENIC TRIOXIDE [Suspect]
     Active Substance: ARSENIC TRIOXIDE
     Indication: Acute leukaemia
     Dosage: INDUCTION PHASE/ TRISENOX
     Route: 042
     Dates: start: 20230710, end: 20230806
  4. VESANOID [Suspect]
     Active Substance: TRETINOIN
     Indication: Acute leukaemia
     Dosage: INDUCTION PHASE: 40 MG MORNING AND EVENING
     Route: 048
     Dates: start: 20230701, end: 20230811
  5. VESANOID [Suspect]
     Active Substance: TRETINOIN
     Indication: Acute leukaemia
     Dosage: CONSOLIDATION PHASE: 40 MG MORNING AND EVENING
     Route: 048
     Dates: start: 20231002, end: 20231015
  6. VESANOID [Suspect]
     Active Substance: TRETINOIN
     Indication: Acute leukaemia
     Dosage: CONSOLIDATION PHASE: 40 MG MORNING AND EVENING (SUSPENDED ON 09/15/2023 DUE TO INFECTION)
     Route: 048
     Dates: start: 20230811, end: 20230825
  7. DIGOXIN [Concomitant]
     Active Substance: DIGOXIN
     Indication: Product used for unknown indication
  8. BISOPROLOL [Concomitant]
     Active Substance: BISOPROLOL\BISOPROLOL FUMARATE
     Indication: Product used for unknown indication
  9. ALBUTEROL [Concomitant]
     Active Substance: ALBUTEROL
     Indication: Product used for unknown indication
  10. ALLOPURINOL [Concomitant]
     Active Substance: ALLOPURINOL
     Indication: Product used for unknown indication
  11. ELIQUIS [Concomitant]
     Active Substance: APIXABAN
     Indication: Product used for unknown indication
  12. METFORMIN HYDROCHLORIDE [Concomitant]
     Active Substance: METFORMIN HYDROCHLORIDE
     Indication: Product used for unknown indication
  13. SERETIDE [Concomitant]
     Active Substance: FLUTICASONE PROPIONATE\SALMETEROL XINAFOATE
     Indication: Product used for unknown indication
     Dosage: 500/50 MICROGRAMS/DOSE, POWDER FOR INHALATION IN SINGLE-DOSE CONTAINER

REACTIONS (1)
  - Dilated cardiomyopathy [Not Recovered/Not Resolved]

NARRATIVE: CASE EVENT DATE: 20231001
